FAERS Safety Report 18969725 (Version 3)
Quarter: 2021Q4

REPORT INFORMATION
  Report Type: Report from Study
  Country: BR (occurrence: BR)
  Receive Date: 20210304
  Receipt Date: 20211209
  Transmission Date: 20220303
  Serious: Yes (Hospitalization, Other)
  Sender: FDA-Public Use
  Company Number: BR-JNJFOC-20210243920

PATIENT
  Age: 37 Year
  Sex: Female
  Weight: 75 kg

DRUGS (5)
  1. REMICADE [Suspect]
     Active Substance: INFLIXIMAB
     Indication: Crohn^s disease
     Dosage: DOSAGE FORM=VIAL
     Route: 042
     Dates: start: 20200211
  2. REMICADE [Suspect]
     Active Substance: INFLIXIMAB
     Dosage: 4 VIALS
     Route: 042
  3. SERTRALINE [Suspect]
     Active Substance: SERTRALINE HYDROCHLORIDE
     Indication: Product used for unknown indication
     Route: 065
  4. AZATHIOPRINE [Concomitant]
     Active Substance: AZATHIOPRINE
  5. DIOSMIN [Concomitant]
     Active Substance: DIOSMIN

REACTIONS (16)
  - Ileal stenosis [Unknown]
  - Pneumonia [Unknown]
  - Thrombosis [Unknown]
  - Fibrosis [Unknown]
  - Spinal column injury [Unknown]
  - Fall [Unknown]
  - Anaemia [Unknown]
  - Hepatic steatosis [Unknown]
  - Polyp [Unknown]
  - Gastritis [Unknown]
  - Diarrhoea [Unknown]
  - Flatulence [Unknown]
  - Asthenia [Unknown]
  - Weight decreased [Unknown]
  - Off label use [Unknown]
  - Product use issue [Unknown]

NARRATIVE: CASE EVENT DATE: 20200101
